FAERS Safety Report 23781967 (Version 1)
Quarter: 2024Q2

REPORT INFORMATION
  Report Type: Spontaneous
  Country: GB (occurrence: US)
  Receive Date: 20240425
  Receipt Date: 20240425
  Transmission Date: 20240716
  Serious: No
  Sender: FDA-Public Use
  Company Number: GB-BESINS-2024-01798

PATIENT

DRUGS (3)
  1. PROGESTERONE [Suspect]
     Active Substance: PROGESTERONE
     Indication: Product used for unknown indication
     Route: 065
  2. ESTRADIOL [Suspect]
     Active Substance: ESTRADIOL
     Indication: Hormone replacement therapy
     Dosage: OLD PUMP; ;
     Route: 065
  3. ESTRADIOL [Suspect]
     Active Substance: ESTRADIOL
     Indication: Hormone replacement therapy
     Dosage: NEW CAN OF OESTROGEL; ;
     Route: 065

REACTIONS (5)
  - Rash [Unknown]
  - Product dose omission issue [Unknown]
  - Product quality issue [Unknown]
  - Product dispensing error [Unknown]
  - Incorrect dose administered by product [Unknown]
